FAERS Safety Report 25477054 (Version 1)
Quarter: 2025Q2

REPORT INFORMATION
  Report Type: Report from Study
  Country: US (occurrence: US)
  Receive Date: 20250625
  Receipt Date: 20250625
  Transmission Date: 20250716
  Serious: Yes (Other)
  Sender: ABBVIE
  Company Number: US-ABBVIE-6337674

PATIENT
  Age: 47 Year
  Sex: Male

DRUGS (1)
  1. RINVOQ [Suspect]
     Active Substance: UPADACITINIB
     Indication: Crohn^s disease
     Route: 048
     Dates: start: 20250120

REACTIONS (10)
  - Transurethral prostatectomy [Unknown]
  - Weight increased [Unknown]
  - Crohn^s disease [Unknown]
  - Headache [Not Recovered/Not Resolved]
  - Skin exfoliation [Unknown]
  - Brain fog [Unknown]
  - Fatigue [Unknown]
  - Hypertension [Unknown]
  - Skin exfoliation [Recovered/Resolved]
  - Urethral operation [Unknown]

NARRATIVE: CASE EVENT DATE: 20250101
